FAERS Safety Report 8197365-4 (Version None)
Quarter: 2012Q1

REPORT INFORMATION
  Report Type: 
  Country: None (occurrence: None)
  Receive Date: 20120309
  Receipt Date: 20120301
  Transmission Date: 20120608
  Serious: Yes (Hospitalization)
  Sender: FDA-Public Use
  Company Number: PL-SANOFI-AVENTIS-2012SA013961

PATIENT
  Sex: Female

DRUGS (1)
  1. ARAVA [Suspect]
     Route: 065
     Dates: start: 20110501

REACTIONS (2)
  - MOVEMENT DISORDER [None]
  - HYPERTHYROIDISM [None]
